FAERS Safety Report 19205960 (Version 1)
Quarter: 2021Q2

REPORT INFORMATION
  Report Type: Spontaneous
  Country: US (occurrence: US)
  Receive Date: 20210501
  Receipt Date: 20210501
  Transmission Date: 20210717
  Serious: No
  Sender: FDA-Public Use
  Company Number: None

PATIENT
  Sex: Male

DRUGS (1)
  1. HUMIRA [Suspect]
     Active Substance: ADALIMUMAB
     Indication: CROHN^S DISEASE
     Route: 058
     Dates: start: 202009

REACTIONS (7)
  - Therapy non-responder [None]
  - Therapy interrupted [None]
  - Drug level decreased [None]
  - Insurance issue [None]
  - Haematochezia [None]
  - Stool analysis abnormal [None]
  - Diarrhoea [None]
